FAERS Safety Report 11788611 (Version 1)
Quarter: 2015Q4

REPORT INFORMATION
  Report Type: Spontaneous
  Country: US (occurrence: None)
  Receive Date: 20151125
  Receipt Date: 20151125
  Transmission Date: 20160305
  Serious: Yes (Other)
  Sender: FDA-Public Use
  Company Number: 2015RIS00148

PATIENT
  Sex: Female

DRUGS (2)
  1. MAGNESIUM OXIDE (MAGNESIUM OXIDE) TABLET, 400MG [Suspect]
     Active Substance: MAGNESIUM OXIDE
     Indication: BLOOD MAGNESIUM DECREASED
     Route: 048
     Dates: start: 201507
  2. TOPOTECAN (TOPOTECAN HYDROCHLORIDE) [Concomitant]

REACTIONS (2)
  - Blood magnesium decreased [None]
  - Drug ineffective [None]
